FAERS Safety Report 10040179 (Version 2)
Quarter: 2014Q1

REPORT INFORMATION
  Report Type: Spontaneous
  Country: US (occurrence: US)
  Receive Date: 20140326
  Receipt Date: 20140326
  Transmission Date: 20141002
  Serious: Yes (Disabling)
  Sender: FDA-Public Use
  Company Number: US-GE HEALTHCARE MEDICAL DIAGNOSTICS-OSCN-PR-1003S-0066

PATIENT
  Age: 74 Year
  Sex: Male

DRUGS (6)
  1. OMNISCAN [Suspect]
     Indication: BACK PAIN
     Route: 042
     Dates: start: 20041213, end: 20041213
  2. OMNISCAN [Suspect]
     Indication: INTERVERTEBRAL DISCITIS
     Route: 042
     Dates: start: 20050119, end: 20050119
  3. OMNISCAN [Suspect]
     Route: 042
     Dates: start: 20050517, end: 20050517
  4. OMNISCAN [Suspect]
     Route: 042
     Dates: start: 20050913, end: 20050913
  5. MAGNEVIST [Suspect]
     Indication: HEADACHE
     Route: 042
     Dates: start: 20010402, end: 20010402
  6. MAGNEVIST [Suspect]
     Indication: TRANSIENT ISCHAEMIC ATTACK
     Route: 042
     Dates: start: 20020711, end: 20020711

REACTIONS (1)
  - Nephrogenic systemic fibrosis [Not Recovered/Not Resolved]
